FAERS Safety Report 15742029 (Version 1)
Quarter: 2018Q4

REPORT INFORMATION
  Report Type: Report from Study
  Country: US (occurrence: US)
  Receive Date: 20181219
  Receipt Date: 20181219
  Transmission Date: 20190205
  Serious: Yes (Hospitalization)
  Sender: FDA-Public Use
  Company Number: US-BAYER-2018-211507

PATIENT
  Age: 72 Year
  Sex: Female

DRUGS (4)
  1. STIVARGA [Suspect]
     Active Substance: REGORAFENIB
     Indication: COLORECTAL CANCER
     Dosage: DAILY DOSE 160 MG
     Route: 048
     Dates: start: 20181109
  2. IBUPROFEN. [Concomitant]
     Active Substance: IBUPROFEN
     Indication: GOUT
  3. IBUPROFEN. [Concomitant]
     Active Substance: IBUPROFEN
     Indication: RHEUMATOID ARTHRITIS
     Dosage: UNK
  4. HEALTHY CARE TURMERIC [Concomitant]
     Indication: GOUT
     Dosage: UNK

REACTIONS (16)
  - Rash [None]
  - Inflammation [Recovering/Resolving]
  - Musculoskeletal disorder [Recovering/Resolving]
  - Fatigue [Not Recovered/Not Resolved]
  - Heart rate abnormal [Recovered/Resolved]
  - Swelling [Recovering/Resolving]
  - Flatulence [Not Recovered/Not Resolved]
  - Abdominal pain upper [Not Recovered/Not Resolved]
  - Blood pressure increased [Recovered/Resolved]
  - Pruritus [Recovered/Resolved]
  - Decreased appetite [Recovering/Resolving]
  - Oral pain [Not Recovered/Not Resolved]
  - Diarrhoea [Recovered/Resolved]
  - Nausea [Not Recovered/Not Resolved]
  - Diarrhoea [Not Recovered/Not Resolved]
  - Pain in extremity [Recovering/Resolving]

NARRATIVE: CASE EVENT DATE: 20181112
